FAERS Safety Report 18687813 (Version 4)
Quarter: 2021Q2

REPORT INFORMATION
  Report Type: Report from Study
  Country: None (occurrence: DE)
  Receive Date: 20201231
  Receipt Date: 20210606
  Transmission Date: 20210717
  Serious: Yes (Hospitalization, Other)
  Sender: FDA-Public Use
  Company Number: DE-ABBVIE-20K-062-3709294-00

PATIENT
  Age: 68 Year
  Sex: Female

DRUGS (12)
  1. NOVORAPID [Concomitant]
     Active Substance: INSULIN ASPART
     Indication: PRODUCT USED FOR UNKNOWN INDICATION
     Dosage: 14?20?0 INTERNATIONAL UNIT
  2. CANDESARTAN. [Concomitant]
     Active Substance: CANDESARTAN
     Indication: PRODUCT USED FOR UNKNOWN INDICATION
  3. EDOXABAN [Concomitant]
     Active Substance: EDOXABAN TOSYLATE
     Indication: CEREBROVASCULAR ACCIDENT PROPHYLAXIS
  4. ATORVASTATIN [Concomitant]
     Active Substance: ATORVASTATIN
     Indication: PRODUCT USED FOR UNKNOWN INDICATION
  5. TRESIBA [Concomitant]
     Active Substance: INSULIN DEGLUDEC
     Indication: PRODUCT USED FOR UNKNOWN INDICATION
     Dosage: 0?0?0?16 INTERNATIONAL UNIT
  6. SKYRIZI [Suspect]
     Active Substance: RISANKIZUMAB-RZAA
     Indication: PSORIASIS
     Route: 058
     Dates: start: 20200130
  7. SKYRIZI [Suspect]
     Active Substance: RISANKIZUMAB-RZAA
     Indication: PSORIATIC ARTHROPATHY
  8. JARDIANCE [Concomitant]
     Active Substance: EMPAGLIFLOZIN
     Indication: PRODUCT USED FOR UNKNOWN INDICATION
  9. L?THYROXIN [Concomitant]
     Active Substance: LEVOTHYROXINE SODIUM
     Indication: PRODUCT USED FOR UNKNOWN INDICATION
  10. VERAPAMIL RETARD [Concomitant]
     Active Substance: VERAPAMIL HYDROCHLORIDE
     Indication: PRODUCT USED FOR UNKNOWN INDICATION
  11. TILIDIN [Concomitant]
     Active Substance: NALOXONE HYDROCHLORIDE\TILIDINE HYDROCHLORIDE
     Indication: PRODUCT USED FOR UNKNOWN INDICATION
     Dosage: 50/4
  12. LIXIANA [Concomitant]
     Active Substance: EDOXABAN TOSYLATE
     Indication: PRODUCT USED FOR UNKNOWN INDICATION

REACTIONS (40)
  - Kyphosis [Unknown]
  - Spinal fusion surgery [Unknown]
  - Cerebral microangiopathy [Recovered/Resolved]
  - Extrasystoles [Recovered/Resolved]
  - Hypotonia [Unknown]
  - Oedema [Unknown]
  - Gait disturbance [Unknown]
  - Somatosensory evoked potentials abnormal [Unknown]
  - Facet joint syndrome [Unknown]
  - Spinal stenosis [Recovered/Resolved]
  - Muscular weakness [Unknown]
  - Atrial fibrillation [Unknown]
  - Fall [Unknown]
  - Neurologic somatic symptom disorder [Unknown]
  - Kyphosis [Recovered/Resolved]
  - Vertebral foraminal stenosis [Unknown]
  - Glycosylated haemoglobin increased [Unknown]
  - Blood triglycerides increased [Unknown]
  - Carotid arteriosclerosis [Unknown]
  - Cervical spinal stenosis [Recovered/Resolved]
  - Balance disorder [Unknown]
  - Thoracic radiculopathy [Unknown]
  - Scoliosis [Unknown]
  - Spinal stenosis [Unknown]
  - Fibrous cortical defect [Unknown]
  - Osteoarthritis [Unknown]
  - Intervertebral disc space narrowing [Unknown]
  - Spinal osteoarthritis [Unknown]
  - Radiculopathy [Unknown]
  - Intervertebral disc protrusion [Unknown]
  - White blood cell count increased [Unknown]
  - Diastolic dysfunction [Unknown]
  - Osteochondrosis [Unknown]
  - Intraosseous lipoma [Unknown]
  - Prothrombin time shortened [Unknown]
  - Blood glucose increased [Unknown]
  - Sacroiliac joint dysfunction [Unknown]
  - Flank pain [Unknown]
  - Paraparesis [Unknown]
  - Intervertebral disc protrusion [Unknown]

NARRATIVE: CASE EVENT DATE: 2020
